FAERS Safety Report 5135861-4 (Version None)
Quarter: 2006Q4

REPORT INFORMATION
  Report Type: 
  Country: None (occurrence: None)
  Receive Date: 20061026
  Receipt Date: 20061018
  Transmission Date: 20070319
  Serious: Yes (Other)
  Sender: FDA-Public Use
  Company Number: US-ABBOTT-06P-163-0347477-00

PATIENT
  Sex: Male
  Weight: 104.5 kg

DRUGS (6)
  1. HUMIRA [Suspect]
     Indication: RHEUMATOID ARTHRITIS
     Route: 058
     Dates: start: 20040101, end: 20060601
  2. METHOTREXATE SODIUM [Concomitant]
     Indication: ARTHRITIS
     Route: 048
  3. FOLIC ACID [Concomitant]
     Indication: RHEUMATOID ARTHRITIS
     Route: 048
  4. BUPROPION HYDROCHLORIDE [Concomitant]
     Indication: ANXIETY
     Route: 048
  5. LEXAPRO [Concomitant]
     Indication: ANXIETY
     Route: 048
  6. LORAZEPAM [Concomitant]
     Indication: STRESS
     Route: 048

REACTIONS (3)
  - DYSPHONIA [None]
  - NASAL SEPTUM DEVIATION [None]
  - VOCAL CORD THICKENING [None]
